FAERS Safety Report 15484163 (Version 3)
Quarter: 2018Q4

REPORT INFORMATION
  Report Type: Spontaneous
  Country: BR (occurrence: BR)
  Receive Date: 20181010
  Receipt Date: 20181121
  Transmission Date: 20190205
  Serious: Yes (Other)
  Sender: FDA-Public Use
  Company Number: BR-BAYER-2018-185969

PATIENT
  Age: 59 Year
  Sex: Female

DRUGS (2)
  1. AVALOX [Suspect]
     Active Substance: MOXIFLOXACIN HYDROCHLORIDE
     Indication: ENDOPHTHALMITIS
     Dosage: 400 MG, QD
     Dates: start: 20180929
  2. EYLIA (AFLIBERCEPT) [Suspect]
     Active Substance: AFLIBERCEPT
     Indication: ANTIANGIOGENIC THERAPY
     Dosage: LEFT EYE
     Dates: start: 20180927

REACTIONS (4)
  - Product use in unapproved indication [None]
  - Off label use [None]
  - Blindness [Not Recovered/Not Resolved]
  - Endophthalmitis [Recovering/Resolving]

NARRATIVE: CASE EVENT DATE: 20180929
